FAERS Safety Report 8749253 (Version 2)
Quarter: 2012Q4

REPORT INFORMATION
  Report Type: Spontaneous
  Country: DK (occurrence: None)
  Receive Date: 20120808
  Receipt Date: 20120927
  Transmission Date: 20130627
  Serious: Yes (Hospitalization)
  Sender: FDA-Public Use
  Company Number: 2012MA009512

PATIENT
  Age: 71 Year
  Sex: Female

DRUGS (7)
  1. GABAPENTIN [Suspect]
     Indication: OSTEOARTHRITIS
     Dosage: 300 MG
     Dates: end: 20120706
  2. AMLODIPINE [Concomitant]
  3. BUTRANS [Concomitant]
  4. LANSOPRAZOLE [Concomitant]
  5. RAMIPRIL [Concomitant]
  6. SOLIFENACIN SUCCINATE [Concomitant]
  7. TOLTERODINE TARTRATE [Concomitant]

REACTIONS (3)
  - URINARY TRACT INFECTION [None]
  - PNEUMONIA [None]
  - HIP ARTHROPLASTY [None]
